FAERS Safety Report 7803819 (Version 7)
Quarter: 2012Q4

REPORT INFORMATION
  Report Type: Report from Study
  Country: BA (occurrence: BA)
  Receive Date: 20110208
  Receipt Date: 20121212
  Transmission Date: 20130627
  Serious: Yes (Hospitalization)
  Sender: FDA-Public Use
  Company Number: BA-ROCHE-753509

PATIENT
  Age: 57 Year
  Sex: Female
  Weight: 85 kg

DRUGS (1)
  1. BEVACIZUMAB [Suspect]
     Indication: NEOPLASM MALIGNANT
     Dosage: DOSE FORM: VIAL DATE OF LAST DOSE PRIOR TO SAE: 31 DEC 10
     Route: 042
     Dates: start: 20101217, end: 20110114

REACTIONS (1)
  - Subileus [Unknown]
